FAERS Safety Report 10390150 (Version 4)
Quarter: 2015Q1

REPORT INFORMATION
  Report Type: Spontaneous
  Country: NP (occurrence: NP)
  Receive Date: 20140818
  Receipt Date: 20150107
  Transmission Date: 20150720
  Serious: Yes (Death)
  Sender: FDA-Public Use
  Company Number: NP-PFIZER INC-2014226299

PATIENT
  Age: 14 Year
  Sex: Male

DRUGS (8)
  1. AVIL [Suspect]
     Active Substance: PHENIRAMINE
     Indication: APLASTIC ANAEMIA
  2. PREDNISOLONE. [Suspect]
     Active Substance: PREDNISOLONE
     Indication: APLASTIC ANAEMIA
     Dosage: 0.5 MG TO 1 MG/KG
     Route: 048
     Dates: start: 20140719, end: 20140721
  3. PARACETAMOL [Suspect]
     Active Substance: ACETAMINOPHEN
     Indication: PREMEDICATION
  4. CYCLOSPORINE. [Suspect]
     Active Substance: CYCLOSPORINE
     Indication: APLASTIC ANAEMIA
     Dosage: UNK
  5. ATGAM [Suspect]
     Active Substance: EQUINE THYMOCYTE IMMUNE GLOBULIN
     Indication: APLASTIC ANAEMIA
     Dosage: 40 MG/KG, 1X/DAY
     Route: 042
     Dates: start: 20140715
  6. DEXAMETHASONE. [Suspect]
     Active Substance: DEXAMETHASONE
     Indication: APLASTIC ANAEMIA
     Dosage: 8 MG, 1X/DAY
     Route: 042
  7. PARACETAMOL [Suspect]
     Active Substance: ACETAMINOPHEN
     Indication: APLASTIC ANAEMIA
     Dosage: UNK
  8. AVIL [Suspect]
     Active Substance: PHENIRAMINE
     Indication: PREMEDICATION

REACTIONS (5)
  - Dyspnoea [Unknown]
  - Haemorrhage intracranial [Fatal]
  - Petechiae [Unknown]
  - Pneumonia fungal [Fatal]
  - Sepsis [Fatal]

NARRATIVE: CASE EVENT DATE: 2014
